FAERS Safety Report 17483385 (Version 1)
Quarter: 2020Q1

REPORT INFORMATION
  Report Type: Spontaneous
  Country: US (occurrence: US)
  Receive Date: 20200229
  Receipt Date: 20200229
  Transmission Date: 20200409
  Serious: Yes (Other)
  Sender: FDA-Public Use
  Company Number: None

PATIENT
  Age: 10 Year
  Sex: Female
  Weight: 31.5 kg

DRUGS (1)
  1. BLISTEX MEDICATED MINT LIP BALM [Suspect]
     Active Substance: DIMETHICONE\OXYBENZONE\PADIMATE O
     Indication: LIP DRY
     Dosage: ?          QUANTITY:1 OUNCE(S);?
     Route: 061
     Dates: start: 20200228, end: 20200229

REACTIONS (3)
  - Skin disorder [None]
  - Rash erythematous [None]
  - Rash [None]

NARRATIVE: CASE EVENT DATE: 20200228
